FAERS Safety Report 15757312 (Version 1)
Quarter: 2018Q4

REPORT INFORMATION
  Report Type: Spontaneous
  Country: CN (occurrence: CN)
  Receive Date: 20181224
  Receipt Date: 20181224
  Transmission Date: 20190205
  Serious: Yes (Other)
  Sender: FDA-Public Use
  Company Number: CN-009507513-1812CHN010986

PATIENT
  Sex: Female

DRUGS (2)
  1. MARVELON [Suspect]
     Active Substance: DESOGESTREL\ETHINYL ESTRADIOL
     Route: 048
  2. MERCILON [Suspect]
     Active Substance: DESOGESTREL\ETHINYL ESTRADIOL
     Dosage: UNK
     Route: 048

REACTIONS (1)
  - Uterine haemorrhage [Unknown]
